FAERS Safety Report 7888088-7 (Version None)
Quarter: 2011Q4

REPORT INFORMATION
  Report Type: 
  Country: None (occurrence: None)
  Receive Date: 20111103
  Receipt Date: 20111028
  Transmission Date: 20120403
  Serious: Yes (Other)
  Sender: FDA-Public Use
  Company Number: JP-JNJFOC-20111100099

PATIENT

DRUGS (8)
  1. TRAMADOL HYDROCHLORIDE/ACETAMINOPHEN [Suspect]
     Indication: MUSCULOSKELETAL PAIN
     Dosage: ONCE A DAY
     Route: 048
  2. LANSOPRAZOLE [Concomitant]
     Route: 048
  3. TRAMADOL HYDROCHLORIDE/ACETAMINOPHEN [Suspect]
     Dosage: PER DAY
     Route: 048
  4. TRIAMCINOLONE [Concomitant]
     Route: 065
  5. PREDNISOLONE [Concomitant]
     Route: 048
  6. DIGOXIN [Concomitant]
     Route: 048
  7. ALENDRONATE SODIUM [Concomitant]
     Route: 048
  8. ONEALFA [Concomitant]
     Route: 048

REACTIONS (2)
  - PURPURA [None]
  - DRUG INEFFECTIVE [None]
